FAERS Safety Report 11074153 (Version 1)
Quarter: 2015Q2

REPORT INFORMATION
  Report Type: Spontaneous
  Country: US (occurrence: US)
  Receive Date: 20150429
  Receipt Date: 20150429
  Transmission Date: 20150821
  Serious: No
  Sender: FDA-Public Use
  Company Number: US-SUN PHARMACEUTICAL INDUSTRIES LTD-2015SUN00970

PATIENT

DRUGS (4)
  1. ESZOPICLONE TABLETS [Suspect]
     Active Substance: ESZOPICLONE
     Indication: INSOMNIA
     Dosage: 1 DF, QD (AT BEDTIME)
     Route: 048
     Dates: start: 201412
  2. SYNTHROID [Concomitant]
     Active Substance: LEVOTHYROXINE SODIUM
     Indication: PRODUCT USED FOR UNKNOWN INDICATION
  3. PREMARIN [Concomitant]
     Active Substance: ESTROGENS, CONJUGATED
     Indication: PRODUCT USED FOR UNKNOWN INDICATION
  4. FLONASE [Concomitant]
     Active Substance: FLUTICASONE PROPIONATE
     Indication: PRODUCT USED FOR UNKNOWN INDICATION

REACTIONS (7)
  - Product substitution issue [Unknown]
  - Fatigue [Recovered/Resolved]
  - Drug effect delayed [Recovered/Resolved]
  - Sedation [Recovered/Resolved]
  - Nightmare [Recovered/Resolved]
  - Hyperhidrosis [Unknown]
  - Screaming [Recovered/Resolved]

NARRATIVE: CASE EVENT DATE: 201412
